FAERS Safety Report 17063630 (Version 1)
Quarter: 2019Q4

REPORT INFORMATION
  Report Type: Spontaneous
  Country: US (occurrence: US)
  Receive Date: 20191122
  Receipt Date: 20191122
  Transmission Date: 20200122
  Serious: No
  Sender: FDA-Public Use
  Company Number: US-MYLANLABS-2019M1109547

PATIENT
  Sex: Male

DRUGS (3)
  1. MERCAPTAMINE [Suspect]
     Active Substance: CYSTEAMINE
     Indication: LIPID METABOLISM DISORDER
     Dosage: 900 MILLIGRAM, Q6H/EVERY 6 HOURS
     Route: 048
     Dates: start: 20031023
  2. MERCAPTAMINE [Suspect]
     Active Substance: CYSTEAMINE
     Indication: LIPID METABOLISM DISORDER
     Dosage: 100 MILLIGRAM, Q6H/EVERY 6 HOURS
     Route: 048
     Dates: start: 20031023
  3. K PHOS NEUTRAL [Suspect]
     Active Substance: POTASSIUM PHOSPHATE, MONOBASIC\SODIUM PHOSPHATE, DIBASIC, ANHYDROUS\SODIUM PHOSPHATE, MONOBASIC, MONOHYDRATE
     Indication: PRODUCT USED FOR UNKNOWN INDICATION
     Dosage: UNK

REACTIONS (1)
  - Diarrhoea [Unknown]
